FAERS Safety Report 20569524 (Version 3)
Quarter: 2022Q1

REPORT INFORMATION
  Report Type: Report from Study
  Country: DE (occurrence: DE)
  Receive Date: 20220309
  Receipt Date: 20220330
  Transmission Date: 20220423
  Serious: Yes (Hospitalization)
  Sender: FDA-Public Use
  Company Number: DE-AMGEN-DEUNI2022039488

PATIENT
  Age: 68 Year
  Sex: Female

DRUGS (5)
  1. AMG-510 [Suspect]
     Active Substance: AMG-510
     Indication: Non-small cell lung cancer
     Dosage: 960 MILLIGRAM (8 TABLETS)
     Route: 065
     Dates: start: 20220126, end: 20220225
  2. AMG-510 [Suspect]
     Active Substance: AMG-510
     Dosage: 480 MILLIGRAM (4 TABLETS)
     Route: 065
     Dates: start: 20220303
  3. CHOLECALCIFEROL [Concomitant]
     Active Substance: CHOLECALCIFEROL
     Dosage: 20000 IE, QWK
     Route: 048
     Dates: start: 202201
  4. LEVETIRACETAM [Concomitant]
     Active Substance: LEVETIRACETAM
     Dosage: 500 MILLIGRAM, BID
     Route: 048
     Dates: start: 20210507
  5. METOPROLOL [Concomitant]
     Active Substance: METOPROLOL
     Dosage: 95 MILLIGRAM, QD
     Route: 048
     Dates: start: 2000

REACTIONS (2)
  - Colitis [Recovered/Resolved]
  - Dehydration [Recovered/Resolved]

NARRATIVE: CASE EVENT DATE: 20220209
